FAERS Safety Report 15820495 (Version 3)
Quarter: 2022Q2

REPORT INFORMATION
  Report Type: Spontaneous
  Country: HU (occurrence: HU)
  Receive Date: 20190114
  Receipt Date: 20220524
  Transmission Date: 20220721
  Serious: Yes (Hospitalization)
  Sender: FDA-Public Use
  Company Number: HU-GEDEON RICHTER PLC.-2018GR_BP007685

PATIENT
  Age: 86 Year
  Sex: Female
  Weight: 69 kg

DRUGS (8)
  1. HALOPERIDOL [Suspect]
     Active Substance: HALOPERIDOL
     Indication: Product used for unknown indication
     Route: 048
     Dates: start: 20160101
  2. HALOPERIDOL [Suspect]
     Active Substance: HALOPERIDOL
     Indication: Product used for unknown indication
     Route: 048
     Dates: start: 20160101
  3. INDAPAMIDE\PERINDOPRIL [Suspect]
     Active Substance: INDAPAMIDE\PERINDOPRIL
     Indication: Hypertension
     Dosage: 1.25/4 MG 1-0-0
     Route: 065
     Dates: start: 2002
  4. RIVOTRIL [Suspect]
     Active Substance: CLONAZEPAM
     Indication: Vascular encephalopathy
     Route: 048
     Dates: start: 20140414
  5. ESOMEPRAZOLE [Concomitant]
     Active Substance: ESOMEPRAZOLE
     Indication: Product used for unknown indication
     Route: 048
     Dates: start: 2016
  6. EUNOCTIN [Concomitant]
     Indication: Product used for unknown indication
     Route: 065
     Dates: start: 2016
  7. CLOPIDOGREL BISULFATE [Concomitant]
     Active Substance: CLOPIDOGREL BISULFATE
     Indication: Product used for unknown indication
     Route: 065
     Dates: start: 2016
  8. LAMOLEP [Concomitant]
     Indication: Product used for unknown indication
     Route: 065
     Dates: start: 2013

REACTIONS (5)
  - Hypotension [Recovered/Resolved]
  - Fall [Unknown]
  - Product dose omission issue [Unknown]
  - Confusional state [Recovered/Resolved]
  - Contusion [Recovered/Resolved]

NARRATIVE: CASE EVENT DATE: 20180901
